FAERS Safety Report 5509444-8 (Version None)
Quarter: 2007Q4

REPORT INFORMATION
  Report Type: 
  Country: None (occurrence: None)
  Receive Date: 20071107
  Receipt Date: 20071026
  Transmission Date: 20080405
  Serious: Yes (Hospitalization, Other)
  Sender: FDA-Public Use
  Company Number: AU-PFIZER INC-2007070956

PATIENT
  Sex: Male
  Weight: 70 kg

DRUGS (4)
  1. LYRICA [Suspect]
     Indication: NEURALGIA
     Route: 048
     Dates: start: 20070417, end: 20070815
  2. CARVEDILOL [Concomitant]
     Route: 048
  3. TRANDOLAPRIL [Concomitant]
     Route: 048
  4. FUROSEMIDE [Concomitant]
     Route: 048

REACTIONS (3)
  - CARDIAC FAILURE [None]
  - OEDEMA PERIPHERAL [None]
  - PLEURAL EFFUSION [None]
